FAERS Safety Report 6162903-X (Version None)
Quarter: 2009Q2

REPORT INFORMATION
  Report Type: 
  Country: None (occurrence: None)
  Receive Date: 20090421
  Receipt Date: 20090128
  Transmission Date: 20091009
  Serious: No
  Sender: FDA-Public Use
  Company Number: US-ASTRAZENECA-2009UW02452

PATIENT
  Age: 71 Year
  Sex: Female
  Weight: 68 kg

DRUGS (3)
  1. TOPROL-XL [Suspect]
     Indication: HYPERTENSION
     Route: 048
  2. TOPAMAX [Suspect]
     Route: 048
     Dates: start: 20081121, end: 20090102
  3. PRINIVIL [Concomitant]

REACTIONS (3)
  - DRUG DISPENSING ERROR [None]
  - HYPERTENSION [None]
  - WRONG DRUG ADMINISTERED [None]
